FAERS Safety Report 8778520 (Version 3)
Quarter: 2012Q4

REPORT INFORMATION
  Report Type: 
  Country: CH (occurrence: CH)
  Receive Date: 20120912
  Receipt Date: 20120928
  Transmission Date: 20130627
  Serious: Yes (Other)
  Sender: FDA-Public Use
  Company Number: CH-ABBOTT-12P-151-0978004-00

PATIENT
  Age: 23 Year
  Sex: Female
  Weight: 56 kg

DRUGS (3)
  1. HUMIRA PRE-FILLED SYRINGE [Suspect]
     Indication: ANKYLOSING SPONDYLITIS
     Dates: start: 20120320
  2. HUMIRA PRE-FILLED SYRINGE [Suspect]
     Indication: REITER^S SYNDROME
     Dates: start: 20100929, end: 201206
  3. HUMIRA PRE-FILLED SYRINGE [Suspect]
     Indication: SPONDYLITIS

REACTIONS (2)
  - Malignant melanoma [Unknown]
  - Fatigue [Unknown]
